FAERS Safety Report 5346104-0 (Version None)
Quarter: 2007Q2

REPORT INFORMATION
  Report Type: 
  Country: None (occurrence: None)
  Receive Date: 20070430
  Receipt Date: 20070109
  Transmission Date: 20071010
  Serious: Yes (Life-Threatening)
  Sender: FDA-Public Use
  Company Number: 252717

PATIENT
  Age: 63 Year
  Sex: Female
  Weight: 62.6 kg

DRUGS (19)
  1. LEVEMIR [Suspect]
     Dosage: SEE IMAGE
     Route: 058
     Dates: start: 20060421, end: 20060422
  2. LEVEMIR [Suspect]
     Dosage: SEE IMAGE
     Route: 058
     Dates: start: 20060422, end: 20060422
  3. LEVEMIR [Suspect]
     Dosage: SEE IMAGE
     Route: 058
     Dates: start: 20060524
  4. LEVEMIR [Suspect]
  5. NOVOLOG [Suspect]
     Dosage: 3 LU, TID, SUBCUTANEOUS
     Route: 058
     Dates: start: 20060410, end: 20060421
  6. PREDNISONE TAB [Concomitant]
  7. ZYRTEC [Concomitant]
  8. PULMICORT [Concomitant]
  9. ACIPHEX [Concomitant]
  10. METOCOPRAM GI METOCLOPRAMIDE HY6DROCHLORIDE) [Concomitant]
  11. VERAPAMIL [Concomitant]
  12. BENICAR [Concomitant]
  13. LISINOPRIL [Concomitant]
  14. CLONIDINE [Concomitant]
  15. KLOR-CON [Concomitant]
  16. LIPITOR [Concomitant]
  17. COUMADIN [Concomitant]
  18. MULTIVITAMINS (THIAMINE HYDROCHLORIDE, RIBOFLAVIN, RETINOL, PANTHENOL, [Concomitant]
  19. ALBUTEROL [Concomitant]

REACTIONS (1)
  - ANAPHYLACTIC REACTION [None]
